FAERS Safety Report 10789275 (Version 1)
Quarter: 2015Q1

REPORT INFORMATION
  Report Type: Spontaneous
  Country: US (occurrence: US)
  Receive Date: 20150212
  Receipt Date: 20150212
  Transmission Date: 20150721
  Serious: No
  Sender: FDA-Public Use
  Company Number: US-GLAXOSMITHKLINE-A1075480A

PATIENT

DRUGS (4)
  1. BENAZEPRIL [Concomitant]
     Active Substance: BENAZEPRIL\BENAZEPRIL HYDROCHLORIDE
  2. HYDROCHLOROTHIAZIDE. [Concomitant]
     Active Substance: HYDROCHLOROTHIAZIDE
  3. FLOVENT [Suspect]
     Active Substance: FLUTICASONE PROPIONATE
     Indication: CHRONIC OBSTRUCTIVE PULMONARY DISEASE
     Dosage: INH 220MCG
     Route: 055
     Dates: start: 20140530, end: 20140531
  4. IBUPROFEN. [Concomitant]
     Active Substance: IBUPROFEN

REACTIONS (9)
  - Hyperhidrosis [Unknown]
  - Dry mouth [Unknown]
  - Decreased appetite [Unknown]
  - Condition aggravated [Unknown]
  - Dysgeusia [Unknown]
  - Feeling of body temperature change [Unknown]
  - Memory impairment [Unknown]
  - Dizziness [Unknown]
  - Feeling abnormal [Unknown]

NARRATIVE: CASE EVENT DATE: 20140531
